FAERS Safety Report 24291432 (Version 1)
Quarter: 2024Q3

REPORT INFORMATION
  Report Type: Spontaneous
  Country: US (occurrence: None)
  Receive Date: 20240906
  Receipt Date: 20240906
  Transmission Date: 20241017
  Serious: No
  Sender: DOMPE FARMACEUTICI
  Company Number: US-FARMAPROD-202308-2584

PATIENT
  Sex: Female

DRUGS (15)
  1. OXERVATE [Suspect]
     Active Substance: CENEGERMIN-BKBJ
     Indication: Neurotrophic keratopathy
     Route: 047
     Dates: start: 20230816
  2. OXERVATE [Suspect]
     Active Substance: CENEGERMIN-BKBJ
  3. CHOLECALCIFEROL [Concomitant]
     Active Substance: CHOLECALCIFEROL
     Dosage: CRYSTALS
  4. ASCORBIC ACID [Concomitant]
     Active Substance: ASCORBIC ACID
  5. ERYTHROMYCIN [Concomitant]
     Active Substance: ERYTHROMYCIN
  6. QUETIAPINE FUMARATE [Concomitant]
     Active Substance: QUETIAPINE FUMARATE
  7. LISINOPRIL [Concomitant]
     Active Substance: LISINOPRIL
  8. OFLOXACIN [Concomitant]
     Active Substance: OFLOXACIN
  9. ATORVASTATIN CALCIUM [Concomitant]
     Active Substance: ATORVASTATIN CALCIUM
  10. ASPIRIN [Concomitant]
     Active Substance: ASPIRIN
  11. METOPROLOL TARTRATE [Concomitant]
     Active Substance: METOPROLOL TARTRATE
  12. OMEPRAZOLE [Concomitant]
     Active Substance: OMEPRAZOLE
  13. ZINC-220 [Concomitant]
     Dosage: 50 (220) MG
  14. NITROGLYCERIN [Concomitant]
     Active Substance: NITROGLYCERIN
  15. RANOLAZINE [Concomitant]
     Active Substance: RANOLAZINE
     Dosage: EXTENDED RELEASE FOR 12 HOURS.

REACTIONS (2)
  - Photophobia [Not Recovered/Not Resolved]
  - Product dose omission issue [Unknown]
